FAERS Safety Report 21620645 (Version 2)
Quarter: 2023Q1

REPORT INFORMATION
  Report Type: Spontaneous
  Country: FR (occurrence: FR)
  Receive Date: 20221121
  Receipt Date: 20230112
  Transmission Date: 20230418
  Serious: Yes (Hospitalization, Other)
  Sender: FDA-Public Use
  Company Number: FR-CELLTRION INC.-2022FR019160

PATIENT

DRUGS (4)
  1. RITUXIMAB [Suspect]
     Active Substance: RITUXIMAB
     Indication: Multiple sclerosis
     Dosage: NUMBER OF ANTI-CD20 CYCLES BEFORE VACCINATION: 6
  2. RITUXIMAB [Suspect]
     Active Substance: RITUXIMAB
     Dosage: SIX CYCLES
  3. PFIZER-BIONTECH COVID-19 VACCINE [Suspect]
     Active Substance: TOZINAMERAN
     Indication: COVID-19 immunisation
     Dosage: 2 DOSES
  4. TOZINAMERAN [Concomitant]
     Active Substance: TOZINAMERAN

REACTIONS (4)
  - Breakthrough COVID-19 [Unknown]
  - COVID-19 [Unknown]
  - Vaccination failure [Unknown]
  - Off label use [Unknown]
